FAERS Safety Report 19144686 (Version 2)
Quarter: 2021Q2

REPORT INFORMATION
  Report Type: Other
  Country: ZA (occurrence: ZA)
  Receive Date: 20210416
  Receipt Date: 20210607
  Transmission Date: 20210717
  Serious: Yes (Other)
  Sender: FDA-Public Use
  Company Number: ZA-ROCHE-2809599

PATIENT
  Sex: Female

DRUGS (14)
  1. VITAMIN D [ERGOCALCIFEROL] [Concomitant]
     Active Substance: ERGOCALCIFEROL
     Dosage: WEEKLY
     Route: 048
  2. PANTOPRAZOLE [Concomitant]
     Active Substance: PANTOPRAZOLE
     Route: 048
  3. SOLU?MEDROL [Concomitant]
     Active Substance: METHYLPREDNISOLONE SODIUM SUCCINATE
     Dosage: PULSE
     Route: 042
  4. TRAMACET [Concomitant]
     Active Substance: ACETAMINOPHEN\TRAMADOL
     Route: 048
  5. METHOTREXATE. [Concomitant]
     Active Substance: METHOTREXATE
     Dosage: 25 MG/ML, 15 MG (0,6 ML) IMI WEEKLY
     Route: 030
  6. MABTHERA [Suspect]
     Active Substance: RITUXIMAB
     Indication: SYSTEMIC LUPUS ERYTHEMATOSUS
  7. CYCLOPHOSPHAMIDE. [Concomitant]
     Active Substance: CYCLOPHOSPHAMIDE
  8. MABTHERA [Suspect]
     Active Substance: RITUXIMAB
     Indication: MYOSITIS
  9. PREDNISONE. [Concomitant]
     Active Substance: PREDNISONE
     Dosage: DAILY
     Route: 048
  10. CYMGEN [Concomitant]
     Active Substance: DULOXETINE HYDROCHLORIDE
     Dosage: BD
     Route: 048
  11. IMURAN [Concomitant]
     Active Substance: AZATHIOPRINE
     Dosage: DAILY
     Route: 048
  12. MABTHERA [Suspect]
     Active Substance: RITUXIMAB
     Indication: ARTHRITIS
     Dosage: DAY 1 AND DAY 15
     Route: 042
  13. FOLIC ACID. [Concomitant]
     Active Substance: FOLIC ACID
     Route: 048
  14. LYRICA [Concomitant]
     Active Substance: PREGABALIN
     Dosage: BD
     Route: 048

REACTIONS (9)
  - Myositis [Unknown]
  - Asthenia [Unknown]
  - Arthritis [Unknown]
  - Off label use [Unknown]
  - Polyneuropathy [Unknown]
  - Neuralgia [Unknown]
  - Vasculitis [Unknown]
  - Diabetes mellitus [Unknown]
  - Mononeuropathy multiplex [Unknown]
